FAERS Safety Report 6093307-6 (Version None)
Quarter: 2009Q1

REPORT INFORMATION
  Report Type: 
  Country: None (occurrence: None)
  Receive Date: 20090226
  Receipt Date: 20090219
  Transmission Date: 20090719
  Serious: Yes (Hospitalization, Disabling, Other)
  Sender: FDA-Public Use
  Company Number: BR-BAYER-200912752LA

PATIENT
  Age: 50 Year
  Sex: Male

DRUGS (2)
  1. NEXAVAR [Suspect]
     Indication: RENAL CANCER
     Route: 048
     Dates: start: 20070801, end: 20080901
  2. NEXAVAR [Suspect]
     Route: 048
     Dates: start: 20090101

REACTIONS (7)
  - IMPAIRED HEALING [None]
  - LEG AMPUTATION [None]
  - METASTASES TO BONE [None]
  - PERIPHERAL ISCHAEMIA [None]
  - POST PROCEDURAL COMPLICATION [None]
  - SEPSIS [None]
  - WOUND [None]
